FAERS Safety Report 5168175-7 (Version None)
Quarter: 2006Q4

REPORT INFORMATION
  Report Type: 
  Country: None (occurrence: None)
  Receive Date: 20061130
  Receipt Date: 20031119
  Transmission Date: 20070319
  Serious: No
  Sender: FDA-Public Use
  Company Number: 23100337

PATIENT
  Age: 56 Year
  Sex: Male

DRUGS (5)
  1. ARGATROBAN [Suspect]
     Indication: HEPARIN-INDUCED THROMBOCYTOPENIA
     Dates: start: 20031118
  2. DOXYCYCLINE [Concomitant]
  3. FLAGYL [Concomitant]
  4. GLUCOVANCE [Concomitant]
  5. K-DUR 10 [Concomitant]

REACTIONS (2)
  - ERYTHEMA [None]
  - URTICARIA [None]
